FAERS Safety Report 7795290-1 (Version None)
Quarter: 2011Q4

REPORT INFORMATION
  Report Type: 
  Country: None (occurrence: None)
  Receive Date: 20111004
  Receipt Date: 20110926
  Transmission Date: 20120403
  Serious: Yes (Other)
  Sender: FDA-Public Use
  Company Number: PHEH2011US05162

PATIENT
  Sex: Female

DRUGS (1)
  1. TRILEPTAL [Suspect]
     Dosage: 1200-1800 MG

REACTIONS (16)
  - ANXIETY [None]
  - TREMOR [None]
  - COUGH [None]
  - DIPLOPIA [None]
  - FALL [None]
  - SPEECH DISORDER [None]
  - COORDINATION ABNORMAL [None]
  - VOMITING [None]
  - PRURITUS [None]
  - DRUG DISPENSING ERROR [None]
  - HALLUCINATION, VISUAL [None]
  - DIARRHOEA [None]
  - URINARY RETENTION [None]
  - RASH [None]
  - PARAESTHESIA [None]
  - NAUSEA [None]
